FAERS Safety Report 21061050 (Version 2)
Quarter: 2022Q3

REPORT INFORMATION
  Report Type: Spontaneous
  Country: US (occurrence: US)
  Receive Date: 20220709
  Receipt Date: 20220817
  Transmission Date: 20221026
  Serious: No
  Sender: FDA-Public Use
  Company Number: US-SA-SAC20220704001435

PATIENT
  Sex: Female

DRUGS (8)
  1. DUPIXENT [Suspect]
     Active Substance: DUPILUMAB
     Indication: Dermatitis atopic
     Dosage: 600 MG, 1X
     Route: 058
     Dates: start: 20200714, end: 20200714
  2. DUPIXENT [Suspect]
     Active Substance: DUPILUMAB
     Dosage: 300 MG, QOW
     Route: 058
     Dates: start: 20200729, end: 20210930
  3. DUPIXENT [Suspect]
     Active Substance: DUPILUMAB
     Dosage: 300 MG, QOW
     Route: 058
     Dates: start: 20220216
  4. TRIAMCINOLONE [Concomitant]
     Active Substance: TRIAMCINOLONE
     Indication: Dermatitis atopic
     Dosage: BID X 2 WEEKS PRN
     Route: 061
     Dates: start: 20210930, end: 20220106
  5. PREDNISONE [Concomitant]
     Active Substance: PREDNISONE
     Indication: Dermatitis atopic
     Dosage: 10 DAYS
     Route: 048
     Dates: start: 20220106, end: 20220115
  6. KENALOG [Concomitant]
     Active Substance: TRIAMCINOLONE ACETONIDE
     Indication: Dermatitis atopic
     Dates: start: 20200623, end: 20200623
  7. COCONUT OIL [Concomitant]
     Active Substance: COCONUT OIL
     Indication: Dermatitis atopic
     Route: 061
  8. ULTRAVATE [Concomitant]
     Active Substance: HALOBETASOL PROPIONATE
     Indication: Dermatitis atopic
     Route: 061

REACTIONS (4)
  - Arthropod bite [Unknown]
  - Visual impairment [Recovered/Resolved]
  - Urticaria [Unknown]
  - Incorrect route of product administration [Unknown]
